FAERS Safety Report 9330548 (Version 1)
Quarter: 2013Q2

REPORT INFORMATION
  Report Type: Report from Study
  Country: US (occurrence: US)
  Receive Date: 20130605
  Receipt Date: 20130605
  Transmission Date: 20140414
  Serious: Yes (Other)
  Sender: FDA-Public Use
  Company Number: PHEH2013US011854

PATIENT
  Age: 46 Year
  Sex: Female
  Weight: 102.49 kg

DRUGS (7)
  1. GILENYA [Suspect]
     Dosage: 0.5 MG, QD
     Route: 048
  2. LISINOPRIL [Concomitant]
     Dosage: 10 MG, UNK
  3. CELEXA [Concomitant]
     Dosage: 10 MG, UNK
  4. CYMBALTA [Concomitant]
     Dosage: 30 MG, UNK
  5. TOPAMAX [Concomitant]
     Dosage: 100 MG, UNK
  6. ATIVAN [Concomitant]
     Dosage: 2 MG, UNK
  7. VITAMIN D [Concomitant]
     Dosage: 50000 U, UNK

REACTIONS (3)
  - Ovarian cyst [Unknown]
  - Pain [Unknown]
  - Urinary tract infection [Unknown]
